FAERS Safety Report 8164056-5 (Version None)
Quarter: 2012Q1

REPORT INFORMATION
  Report Type: 
  Country: None (occurrence: None)
  Receive Date: 20120224
  Receipt Date: 20120214
  Transmission Date: 20120608
  Serious: Yes (Other)
  Sender: FDA-Public Use
  Company Number: PHHY2011AU33780

PATIENT
  Sex: Female
  Weight: 88 kg

DRUGS (2)
  1. CLOZARIL [Suspect]
     Dosage: 75 MG, UNK
     Route: 048
     Dates: start: 20001220, end: 20110331
  2. CLOZARIL [Suspect]
     Dates: start: 20120101

REACTIONS (2)
  - PREMATURE LABOUR [None]
  - MATERNAL EXPOSURE DURING PREGNANCY [None]
